FAERS Safety Report 25074493 (Version 2)
Quarter: 2025Q1

REPORT INFORMATION
  Report Type: Spontaneous
  Country: CN (occurrence: CN)
  Receive Date: 20250313
  Receipt Date: 20250319
  Transmission Date: 20250409
  Serious: Yes (Hospitalization)
  Sender: GLAXOSMITHKLINE
  Company Number: CN-GLAXOSMITHKLINE INC-CN2025APC028119

PATIENT

DRUGS (4)
  1. NUCALA [Suspect]
     Active Substance: MEPOLIZUMAB
     Indication: Eosinophilic granulomatosis with polyangiitis
     Dates: start: 202411
  2. NUCALA [Suspect]
     Active Substance: MEPOLIZUMAB
  3. NUCALA [Suspect]
     Active Substance: MEPOLIZUMAB
  4. NUCALA [Suspect]
     Active Substance: MEPOLIZUMAB
     Indication: Eosinophilic granulomatosis with polyangiitis
     Dates: start: 20250306

REACTIONS (5)
  - Hospitalisation [Unknown]
  - Injection site injury [Unknown]
  - Underdose [Unknown]
  - Product leakage [Unknown]
  - Product complaint [Unknown]

NARRATIVE: CASE EVENT DATE: 20250306
